FAERS Safety Report 9694225 (Version 1)
Quarter: 2013Q4

REPORT INFORMATION
  Report Type: Spontaneous
  Country: US (occurrence: US)
  Receive Date: 20131118
  Receipt Date: 20131118
  Transmission Date: 20140711
  Serious: No
  Sender: FDA-Public Use
  Company Number: US-PFIZER INC-2013327061

PATIENT
  Age: 37 Year
  Sex: Female

DRUGS (11)
  1. NEURONTIN [Suspect]
     Dosage: UNK
  2. MORPHINE SULFATE [Suspect]
     Dosage: UNK
  3. BACTRIM [Suspect]
     Dosage: UNK
  4. CIPRO [Suspect]
     Dosage: UNK
  5. DEMEROL [Suspect]
     Dosage: UNK
  6. KEFLEX [Suspect]
     Dosage: UNK
  7. PERCOCET [Suspect]
     Dosage: UNK
  8. QUINORA [Suspect]
     Dosage: UNK
  9. ROCEPHINE [Suspect]
     Dosage: UNK
  10. WELLBUTRIN [Suspect]
     Dosage: UNK
  11. ULTRAM [Suspect]
     Dosage: UNK

REACTIONS (1)
  - Drug hypersensitivity [Unknown]
